FAERS Safety Report 9217496 (Version 2)
Quarter: 2013Q2

REPORT INFORMATION
  Report Type: Spontaneous
  Country: US (occurrence: None)
  Receive Date: 20130404
  Receipt Date: 20130411
  Transmission Date: 20140414
  Serious: Yes (Hospitalization, Other)
  Sender: FDA-Public Use
  Company Number: JPI-P-030802

PATIENT
  Age: 52 Year
  Sex: Male

DRUGS (1)
  1. XYREM [Suspect]
     Indication: NARCOLEPSY
     Dosage: (4 GM 1ST DOESE/2 GM 2ND DOSE), ORAL
     Route: 048
     Dates: start: 20080923

REACTIONS (2)
  - Abasia [None]
  - Arthralgia [None]
